FAERS Safety Report 24067366 (Version 5)
Quarter: 2024Q4

REPORT INFORMATION
  Report Type: Spontaneous
  Country: AR (occurrence: AR)
  Receive Date: 20240709
  Receipt Date: 20241107
  Transmission Date: 20250115
  Serious: No
  Sender: PFIZER
  Company Number: AR-PFIZER INC-202400207002

PATIENT
  Age: 45 Year
  Sex: Female
  Weight: 72 kg

DRUGS (1)
  1. ABRILADA [Suspect]
     Active Substance: ADALIMUMAB-AFZB
     Indication: Psoriatic arthropathy
     Dosage: 40MG/0,8ML EVERY 14 DAYS
     Route: 058
     Dates: start: 2022

REACTIONS (5)
  - Accidental exposure to product [Recovered/Resolved]
  - Poor quality device used [Recovered/Resolved]
  - Needle issue [Recovered/Resolved]
  - Drug dose omission by device [Not Recovered/Not Resolved]
  - Device leakage [Not Recovered/Not Resolved]

NARRATIVE: CASE EVENT DATE: 20240703
